FAERS Safety Report 7534160-0 (Version None)
Quarter: 2011Q2

REPORT INFORMATION
  Report Type: 
  Country: None (occurrence: None)
  Receive Date: 20110608
  Receipt Date: 20061025
  Transmission Date: 20111010
  Serious: Yes (Hospitalization, Other)
  Sender: FDA-Public Use
  Company Number: PHMT2006CA02035

PATIENT
  Sex: Male

DRUGS (2)
  1. DIOVAN [Suspect]
     Dosage: 80 MG
     Route: 048
     Dates: start: 20030101, end: 20050101
  2. DIOVAN [Suspect]
     Dosage: 160 MG
     Route: 048
     Dates: start: 20050101

REACTIONS (1)
  - CORONARY ARTERY OCCLUSION [None]
